FAERS Safety Report 9474951 (Version 1)
Quarter: 2013Q3

REPORT INFORMATION
  Report Type: Spontaneous
  Country: GB (occurrence: GB)
  Receive Date: 20130824
  Receipt Date: 20130824
  Transmission Date: 20140515
  Serious: Yes (Other)
  Sender: FDA-Public Use
  Company Number: GB-JNJFOC-20130806138

PATIENT
  Age: 34 Year
  Sex: Male
  Weight: 72.5 kg

DRUGS (3)
  1. CETIRIZINE HYDROCHLORIDE [Suspect]
     Route: 048
  2. CETIRIZINE HYDROCHLORIDE [Suspect]
     Indication: URTICARIA
     Route: 048
     Dates: start: 20130725, end: 20130725
  3. CHLORPHENAMINE [Concomitant]
     Indication: URTICARIA
     Route: 048
     Dates: start: 20130528, end: 20130725

REACTIONS (5)
  - Palpitations [Recovered/Resolved]
  - Euphoric mood [Recovered/Resolved]
  - Tachycardia [Recovered/Resolved]
  - Tremor [Recovered/Resolved]
  - Nausea [Recovered/Resolved]
